FAERS Safety Report 19936325 (Version 1)
Quarter: 2021Q4

REPORT INFORMATION
  Report Type: Spontaneous
  Country: DE (occurrence: DE)
  Receive Date: 20211009
  Receipt Date: 20211009
  Transmission Date: 20220304
  Serious: Yes (Death, Hospitalization, Congenital Anomaly, Other)
  Sender: FDA-Public Use
  Company Number: None

PATIENT
  Sex: Male
  Weight: 2.98 kg

DRUGS (7)
  1. BUPROPION [Suspect]
     Active Substance: BUPROPION
     Dosage: 300 MG/D (MOTHER)
     Route: 064
     Dates: start: 20200313, end: 20200407
  2. BEROTEC [Concomitant]
     Active Substance: FENOTEROL HYDROBROMIDE
     Route: 065
     Dates: start: 20200313, end: 20201202
  3. VENLAFAXINE [Concomitant]
     Active Substance: VENLAFAXINE HYDROCHLORIDE
     Dosage: 225 MG/D (FATHER)
     Route: 065
     Dates: start: 20200313, end: 20201202
  4. CLONIDINE [Concomitant]
     Active Substance: CLONIDINE
     Dosage: 0.3 MG/D  (FATHER)
     Route: 065
     Dates: start: 20200313, end: 20201202
  5. PANTOPRAZOLE [Concomitant]
     Active Substance: PANTOPRAZOLE
     Dosage: 40 MG/D (FATHER)
     Route: 065
     Dates: start: 20200313, end: 20201202
  6. ZOPICLONE [Concomitant]
     Active Substance: ZOPICLONE
     Dosage: 11 MG/D  (FATHER)
     Route: 065
     Dates: start: 20200313, end: 20201202
  7. QUETIAPINE [Concomitant]
     Active Substance: QUETIAPINE
     Dosage: 350 MG/D (50-50-50-200, FATHER)
     Route: 065
     Dates: start: 20200313, end: 20201202

REACTIONS (8)
  - Ventricular septal defect [Unknown]
  - Atrial septal defect [Unknown]
  - Univentricular heart [Fatal]
  - Double inlet left ventricle [Fatal]
  - Exposure via body fluid [Unknown]
  - Congenital tricuspid valve atresia [Fatal]
  - Transposition of the great vessels [Fatal]
  - Foetal exposure during pregnancy [Unknown]

NARRATIVE: CASE EVENT DATE: 20201202
